FAERS Safety Report 16588949 (Version 1)
Quarter: 2019Q3

REPORT INFORMATION
  Report Type: Spontaneous
  Country: IN (occurrence: IN)
  Receive Date: 20190718
  Receipt Date: 20190718
  Transmission Date: 20191004
  Serious: No
  Sender: FDA-Public Use
  Company Number: IN-LUPIN LIMITED-2018-04636

PATIENT
  Sex: Male

DRUGS (7)
  1. TRISAN                             /00243802/ [Concomitant]
     Indication: PRODUCT USED FOR UNKNOWN INDICATION
     Dosage: 1 DF, QD
     Route: 048
     Dates: start: 20180517
  2. RIBUTIN CAPS 150 MG [Suspect]
     Active Substance: RIFABUTIN
     Indication: TUBERCULOSIS
     Dosage: 3 DF, QD, IN MORNING EMPTY STOMACH
     Route: 048
     Dates: start: 20180517
  3. HANSEPRAN [Concomitant]
     Active Substance: CLOFAZIMINE
     Indication: PRODUCT USED FOR UNKNOWN INDICATION
     Dosage: UNK, BID
     Route: 048
     Dates: start: 20180517
  4. LINEZOLID. [Concomitant]
     Active Substance: LINEZOLID
     Indication: PRODUCT USED FOR UNKNOWN INDICATION
     Dosage: 300 MG, QD
     Route: 048
     Dates: start: 20180517
  5. DYTOR [Concomitant]
     Active Substance: TORSEMIDE
     Indication: PRODUCT USED FOR UNKNOWN INDICATION
     Dosage: 1 DF, QD
     Route: 048
     Dates: start: 20180616
  6. MOXIKIND [Concomitant]
     Indication: PRODUCT USED FOR UNKNOWN INDICATION
     Dosage: 1 DF, BID
     Route: 048
     Dates: start: 20180517
  7. DOXOLIN [Concomitant]
     Indication: PRODUCT USED FOR UNKNOWN INDICATION
     Dosage: 1 DF, BID
     Route: 048
     Dates: start: 20180517

REACTIONS (1)
  - Abdominal distension [Not Recovered/Not Resolved]

NARRATIVE: CASE EVENT DATE: 20180518
